FAERS Safety Report 12402526 (Version 2)
Quarter: 2016Q2

REPORT INFORMATION
  Report Type: Spontaneous
  Country: US (occurrence: US)
  Receive Date: 20160525
  Receipt Date: 20160527
  Transmission Date: 20160815
  Serious: No
  Sender: FDA-Public Use
  Company Number: US-SA-2016SA051843

PATIENT
  Age: 69 Year
  Sex: Male

DRUGS (3)
  1. LANTUS SOLOSTAR [Suspect]
     Active Substance: INSULIN GLARGINE
     Indication: DIABETES MELLITUS
     Dosage: 60 U AM AND 35 U PM
     Route: 065
     Dates: start: 201602
  2. LANTUS SOLOSTAR [Suspect]
     Active Substance: INSULIN GLARGINE
     Indication: DIABETES MELLITUS
     Dosage: LANTUS VIALS
     Route: 065
     Dates: end: 2016
  3. SOLOSTAR [Concomitant]
     Active Substance: DEVICE
     Dates: start: 201602

REACTIONS (3)
  - Limb injury [Unknown]
  - Underdose [Unknown]
  - Product use issue [Unknown]

NARRATIVE: CASE EVENT DATE: 201602
